FAERS Safety Report 7411033-5 (Version None)
Quarter: 2011Q2

REPORT INFORMATION
  Report Type: 
  Country: None (occurrence: None)
  Receive Date: 20110413
  Receipt Date: 20110331
  Transmission Date: 20111010
  Serious: No
  Sender: FDA-Public Use
  Company Number: US-JNJFOC-20110401804

PATIENT
  Sex: Female
  Weight: 72.58 kg

DRUGS (6)
  1. FENTANYL-100 [Suspect]
     Indication: ARTHRALGIA
     Route: 062
  2. FENTANYL-100 [Suspect]
     Route: 062
  3. FENTANYL-100 [Suspect]
     Route: 062
  4. FENTANYL-100 [Suspect]
     Indication: PAIN IN EXTREMITY
     Route: 062
  5. FENTANYL-100 [Suspect]
     Indication: BACK PAIN
     Route: 062
  6. FENTANYL-100 [Suspect]
     Route: 062

REACTIONS (5)
  - FEELING ABNORMAL [None]
  - APPLICATION SITE PRURITUS [None]
  - WRONG TECHNIQUE IN DRUG USAGE PROCESS [None]
  - DRUG ADMINISTERED AT INAPPROPRIATE SITE [None]
  - DRUG INEFFECTIVE [None]
